FAERS Safety Report 4831590-2 (Version None)
Quarter: 2005Q4

REPORT INFORMATION
  Report Type: 
  Country: None (occurrence: None)
  Receive Date: 20051116
  Receipt Date: 20051108
  Transmission Date: 20060501
  Serious: Yes (Hospitalization)
  Sender: FDA-Public Use
  Company Number: 2005152069

PATIENT
  Age: 12 Year
  Sex: Male
  Weight: 58 kg

DRUGS (1)
  1. GENOTROPIN [Suspect]
     Indication: PRADER-WILLI SYNDROME
     Dosage: 1.7 MG (1.7 MG, DAILY), SUBCUTANEOUS
     Route: 058
     Dates: start: 20040717, end: 20051001

REACTIONS (1)
  - DIABETIC KETOACIDOSIS [None]
